FAERS Safety Report 5710837-4 (Version None)
Quarter: 2008Q2

REPORT INFORMATION
  Report Type: 
  Country: None (occurrence: None)
  Receive Date: 20080417
  Receipt Date: 20080417
  Transmission Date: 20081010
  Serious: Yes (Other)
  Sender: FDA-Public Use
  Company Number: None

PATIENT
  Age: 32 Year
  Sex: Male
  Weight: 70.7611 kg

DRUGS (2)
  1. CIPRO [Suspect]
  2. AZITHROMYCIN [Suspect]

REACTIONS (24)
  - ANAL FISSURE [None]
  - ANAL HAEMORRHAGE [None]
  - ANORECTAL DISCOMFORT [None]
  - ANORECTAL DISORDER [None]
  - ANOREXIA [None]
  - BURNING SENSATION [None]
  - DIARRHOEA [None]
  - DISBACTERIOSIS [None]
  - DISTURBANCE IN ATTENTION [None]
  - ERYTHEMA [None]
  - FATIGUE [None]
  - HEADACHE [None]
  - MICTURITION URGENCY [None]
  - NIGHT SWEATS [None]
  - PAINFUL DEFAECATION [None]
  - PALPITATIONS [None]
  - PENILE SWELLING [None]
  - PENIS DISORDER [None]
  - STRESS [None]
  - SWELLING [None]
  - URETHRAL DISORDER [None]
  - URETHRAL HAEMORRHAGE [None]
  - URINE OUTPUT INCREASED [None]
  - WEIGHT DECREASED [None]
